FAERS Safety Report 12714757 (Version 3)
Quarter: 2018Q1

REPORT INFORMATION
  Report Type: Report from Study
  Country: US (occurrence: US)
  Receive Date: 20160905
  Receipt Date: 20180112
  Transmission Date: 20180508
  Serious: No
  Sender: FDA-Public Use
  Company Number: US-009507513-1608USA013006

PATIENT
  Sex: Male

DRUGS (2)
  1. NOXAFIL [Suspect]
     Active Substance: POSACONAZOLE
     Dosage: 3 TABLETS (100 MG) ONCE A DAY
     Route: 048
  2. NOXAFIL [Suspect]
     Active Substance: POSACONAZOLE
     Dosage: UNK
     Route: 048

REACTIONS (2)
  - Adverse event [Unknown]
  - Blood test abnormal [Unknown]
